FAERS Safety Report 6232593-6 (Version None)
Quarter: 2009Q2

REPORT INFORMATION
  Report Type: 
  Country: None (occurrence: None)
  Receive Date: 20090617
  Receipt Date: 20090609
  Transmission Date: 20091009
  Serious: Yes (Hospitalization, Other)
  Sender: FDA-Public Use
  Company Number: KR-BAYER-200923058GPV

PATIENT
  Age: 71 Year
  Sex: Male
  Weight: 62 kg

DRUGS (13)
  1. NEXAVAR [Suspect]
     Indication: HEPATIC NEOPLASM MALIGNANT
     Route: 048
     Dates: start: 20090421, end: 20090505
  2. NEXAVAR [Suspect]
     Route: 048
     Dates: start: 20090506, end: 20090520
  3. SILYMARIN [Concomitant]
     Indication: LIVER DISORDER
     Route: 048
     Dates: start: 20020711
  4. URSODIOL [Concomitant]
     Indication: CHOLELITHIASIS
     Route: 048
     Dates: start: 20020711
  5. AROMIN [Concomitant]
     Indication: DRUG USE FOR UNKNOWN INDICATION
     Route: 048
     Dates: start: 20020711
  6. ATENOLOL [Concomitant]
     Indication: HYPERTENSION
     Route: 048
     Dates: start: 20070305
  7. LAMIVUDINE [Concomitant]
     Indication: HEPATITIS B
     Route: 048
     Dates: start: 20090506
  8. AZELASTINE HCL [Concomitant]
     Indication: ANTIALLERGIC THERAPY
     Route: 048
     Dates: start: 20090507, end: 20090511
  9. LEVODROPROZINE [Concomitant]
     Indication: ANTITUSSIVE THERAPY
     Route: 048
     Dates: start: 20090507, end: 20090511
  10. BESZYME [Concomitant]
     Indication: DYSPEPSIA
     Route: 048
     Dates: start: 20090521, end: 20090528
  11. LOPERAMIDE OXIDE [Concomitant]
     Indication: DIARRHOEA
     Route: 048
     Dates: start: 20090521, end: 20090528
  12. MOSAPRIDE [Concomitant]
     Indication: ANTIEMETIC SUPPORTIVE CARE
     Route: 048
     Dates: start: 20090521, end: 20090528
  13. METFORMIN HCL [Concomitant]
     Indication: DIABETES MELLITUS
     Route: 048
     Dates: start: 20090101

REACTIONS (3)
  - CEREBRAL HAEMORRHAGE [None]
  - MUSCULAR WEAKNESS [None]
  - THROMBOCYTOPENIA [None]
